FAERS Safety Report 10418816 (Version 7)
Quarter: 2015Q4

REPORT INFORMATION
  Report Type: Report from Study
  Country: US (occurrence: US)
  Receive Date: 20140829
  Receipt Date: 20151020
  Transmission Date: 20160304
  Serious: Yes (Hospitalization, Other)
  Sender: FDA-Public Use
  Company Number: US-SA-2014SA073583

PATIENT
  Age: 53 Year
  Sex: Female

DRUGS (4)
  1. AUBAGIO [Suspect]
     Active Substance: TERIFLUNOMIDE
     Indication: MULTIPLE SCLEROSIS
     Dosage: PILLS
     Route: 048
  2. CELEBREX [Concomitant]
     Active Substance: CELECOXIB
  3. AUBAGIO [Suspect]
     Active Substance: TERIFLUNOMIDE
     Indication: MULTIPLE SCLEROSIS
     Dosage: PILLS
     Route: 048
     Dates: start: 20140509
  4. LYRICA [Concomitant]
     Active Substance: PREGABALIN

REACTIONS (15)
  - Sleep disorder [Unknown]
  - Multiple sclerosis relapse [Unknown]
  - Eye contusion [Not Recovered/Not Resolved]
  - Unevaluable event [Not Recovered/Not Resolved]
  - Muscle spasms [Unknown]
  - Coordination abnormal [Not Recovered/Not Resolved]
  - Headache [Not Recovered/Not Resolved]
  - Hernia repair [Unknown]
  - Fall [Unknown]
  - Dyspnoea [Unknown]
  - Pleurisy [Unknown]
  - Contusion [Not Recovered/Not Resolved]
  - Constipation [Unknown]
  - Ill-defined disorder [Unknown]
  - Drug dose omission [Unknown]

NARRATIVE: CASE EVENT DATE: 2015
